FAERS Safety Report 20005509 (Version 3)
Quarter: 2021Q4

REPORT INFORMATION
  Report Type: Report from Study
  Country: FR (occurrence: FR)
  Receive Date: 20211028
  Receipt Date: 20211214
  Transmission Date: 20220304
  Serious: Yes (Hospitalization, Other)
  Sender: FDA-Public Use
  Company Number: FR-AMGEN-FRACT2021166555

PATIENT
  Age: 73 Year
  Sex: Male
  Weight: 50 kg

DRUGS (13)
  1. PANITUMUMAB [Suspect]
     Active Substance: PANITUMUMAB
     Indication: Colorectal cancer metastatic
     Dosage: 330 MILLIGRAM (CUMULATIVE DOSE: 1010 MG)
     Route: 042
     Dates: start: 20210915
  2. FLUOROURACIL [Suspect]
     Active Substance: FLUOROURACIL
     Indication: Colorectal cancer metastatic
     Dosage: 3800 MILLIGRAM (CUMUATIVE DOSE: 11600 MG)
     Route: 042
     Dates: start: 20210915
  3. FLUOROURACIL [Suspect]
     Active Substance: FLUOROURACIL
     Dosage: 640 MILLIGRAM (CUMULATIVE DOSE: 1300 MG)
     Route: 040
     Dates: start: 20210915, end: 20210929
  4. LEUCOVORIN CALCIUM [Suspect]
     Active Substance: LEUCOVORIN CALCIUM
     Indication: Colorectal cancer metastatic
     Dosage: 322 MILLIGRAM (CUMULATIVE DOSE: 974 MG)
     Route: 042
     Dates: start: 20210915
  5. IRINOTECAN [Suspect]
     Active Substance: IRINOTECAN
     Indication: Colorectal cancer metastatic
     Dosage: 190 MILLIGRAM (CUMULATIVE DOSE: 680 MG)
     Route: 042
     Dates: start: 20210915
  6. IRINOTECAN [Suspect]
     Active Substance: IRINOTECAN
     Dosage: DOSE DECREASED
     Route: 042
  7. ELOXATIN [Suspect]
     Active Substance: OXALIPLATIN
     Indication: Colorectal cancer metastatic
     Dosage: 135 MILLIGRAM (CUMULATIVE DOSE: 410 MG)
     Route: 042
     Dates: start: 20210915
  8. COVID-19 VACCINE NOS [Concomitant]
     Active Substance: COVID-19 VACCINE NOS
  9. FLUOROURACIL\IRINOTECAN\LEUCOVORIN\OXALIPLATIN [Concomitant]
     Active Substance: FLUOROURACIL\IRINOTECAN\LEUCOVORIN\OXALIPLATIN
     Indication: Malignant peritoneal neoplasm
  10. VECTIBIX [Concomitant]
     Active Substance: PANITUMUMAB
     Indication: Malignant peritoneal neoplasm
     Dosage: UNK
  11. RAMIPRIL [Concomitant]
     Active Substance: RAMIPRIL
     Indication: Hypertension
     Dosage: 1.25 MILLIGRAM, QD
     Route: 048
  12. ZOFENOPRIL [Concomitant]
     Active Substance: ZOFENOPRIL
     Indication: Hypertension
     Dosage: 30 MILLIGRAM, QD
     Route: 048
  13. ZOFENOPRIL [Concomitant]
     Active Substance: ZOFENOPRIL
     Dosage: 15 MILLIGRAM, QD

REACTIONS (1)
  - Dehydration [Not Recovered/Not Resolved]

NARRATIVE: CASE EVENT DATE: 20211019
